FAERS Safety Report 9343204 (Version 1)
Quarter: 2013Q2

REPORT INFORMATION
  Report Type: Spontaneous
  Country: US (occurrence: US)
  Receive Date: 20130611
  Receipt Date: 20130611
  Transmission Date: 20140414
  Serious: No
  Sender: FDA-Public Use
  Company Number: US-009507513-1306USA002076

PATIENT
  Age: 60 Year
  Sex: Male

DRUGS (1)
  1. JANUMET [Suspect]
     Dosage: ONE TABLET TWICE PER DAY
     Route: 048
     Dates: start: 201303, end: 2013

REACTIONS (1)
  - Sinus congestion [Recovered/Resolved]
